FAERS Safety Report 19233505 (Version 1)
Quarter: 2021Q2

REPORT INFORMATION
  Report Type: Spontaneous
  Country: US (occurrence: US)
  Receive Date: 20210507
  Receipt Date: 20210507
  Transmission Date: 20210717
  Serious: No
  Sender: FDA-Public Use
  Company Number: US-009507513-2105USA000943

PATIENT
  Age: 72 Year
  Sex: Male

DRUGS (3)
  1. STROMECTOL [Suspect]
     Active Substance: IVERMECTIN
     Indication: RASH
     Route: 048
  2. STROMECTOL [Suspect]
     Active Substance: IVERMECTIN
     Indication: RASH PRURITIC
  3. STROMECTOL [Suspect]
     Active Substance: IVERMECTIN
     Indication: RASH ERYTHEMATOUS

REACTIONS (1)
  - Product use in unapproved indication [Unknown]
